FAERS Safety Report 5200256-1 (Version None)
Quarter: 2007Q1

REPORT INFORMATION
  Report Type: 
  Country: None (occurrence: None)
  Receive Date: 20070105
  Receipt Date: 20070102
  Transmission Date: 20070707
  Serious: Yes (Hospitalization)
  Sender: FDA-Public Use
  Company Number: ES-BOEHRINGER INGELHEIM PHARMACEUTICALS, INC.-2007-ES-00003ES

PATIENT
  Age: 73 Year
  Sex: Male

DRUGS (7)
  1. CATAPRESAN [Suspect]
     Indication: ESSENTIAL HYPERTENSION
     Route: 048
     Dates: end: 20061016
  2. TRANSTEC [Suspect]
     Indication: PAIN IN EXTREMITY
     Dosage: WEEKLY
     Route: 062
     Dates: start: 20060930, end: 20061006
  3. BELOKEN RETARD [Concomitant]
     Indication: ESSENTIAL HYPERTENSION
     Route: 048
     Dates: end: 20061006
  4. APROVEL [Concomitant]
     Indication: ESSENTIAL HYPERTENSION
     Route: 048
  5. AAS [Concomitant]
     Indication: MYOCARDIAL ISCHAEMIA
     Route: 048
     Dates: end: 20061006
  6. CARDYL [Concomitant]
     Route: 048
  7. FOLI-DOCE [Concomitant]
     Route: 048

REACTIONS (1)
  - CONFUSIONAL STATE [None]
